FAERS Safety Report 24611913 (Version 1)
Quarter: 2024Q4

REPORT INFORMATION
  Report Type: Spontaneous
  Country: JP (occurrence: JP)
  Receive Date: 20241113
  Receipt Date: 20241113
  Transmission Date: 20250115
  Serious: Yes (Hospitalization, Other)
  Sender: NOVITIUM PHARMA
  Company Number: JP-NOVITIUMPHARMA-2024JPNVP02554

PATIENT
  Age: 47 Year
  Sex: Female

DRUGS (12)
  1. ALPRAZOLAM [Suspect]
     Active Substance: ALPRAZOLAM
     Indication: Depression
     Route: 048
  2. ALPRAZOLAM [Suspect]
     Active Substance: ALPRAZOLAM
     Indication: Insomnia
  3. LITHIUM [Concomitant]
     Active Substance: LITHIUM
     Indication: Depression
     Route: 048
  4. LITHIUM [Concomitant]
     Active Substance: LITHIUM
     Indication: Insomnia
  5. BROTIZOLAM [Concomitant]
     Active Substance: BROTIZOLAM
     Indication: Depression
     Route: 048
  6. BROTIZOLAM [Concomitant]
     Active Substance: BROTIZOLAM
     Indication: Insomnia
  7. ESZOPICLONE [Concomitant]
     Active Substance: ESZOPICLONE
     Indication: Depression
     Route: 048
  8. ESZOPICLONE [Concomitant]
     Active Substance: ESZOPICLONE
     Indication: Insomnia
  9. LEVOMEPROMAZINE [Concomitant]
     Active Substance: LEVOMEPROMAZINE
     Indication: Depression
     Route: 048
  10. LEVOMEPROMAZINE [Concomitant]
     Active Substance: LEVOMEPROMAZINE
     Indication: Insomnia
  11. CHLORPROMAZINE [Concomitant]
     Active Substance: CHLORPROMAZINE
     Indication: Depression
     Route: 048
  12. CHLORPROMAZINE [Concomitant]
     Active Substance: CHLORPROMAZINE
     Indication: Insomnia

REACTIONS (6)
  - Altered state of consciousness [Unknown]
  - Renal failure [Unknown]
  - Dehydration [Unknown]
  - Hypotension [Unknown]
  - Intentional overdose [Unknown]
  - Intentional product misuse [Unknown]
